FAERS Safety Report 15857886 (Version 1)
Quarter: 2018Q4

REPORT INFORMATION
  Report Type: Spontaneous
  Country: US (occurrence: US)
  Receive Date: 20181228
  Receipt Date: 20181228
  Transmission Date: 20190205
  Serious: No
  Sender: FDA-Public Use
  Company Number: None

PATIENT
  Age: 72 Year
  Sex: Male

DRUGS (4)
  1. ALFUZOSIN [Concomitant]
     Active Substance: ALFUZOSIN
  2. FUROSEMIDE. [Concomitant]
     Active Substance: FUROSEMIDE
  3. SPRYCEL [Suspect]
     Active Substance: DASATINIB
     Indication: CHRONIC MYELOID LEUKAEMIA
     Route: 048
     Dates: start: 20181123, end: 20181223
  4. SYNTHROID [Concomitant]
     Active Substance: LEVOTHYROXINE SODIUM

REACTIONS (2)
  - Oedema peripheral [None]
  - Dyspnoea [None]

NARRATIVE: CASE EVENT DATE: 20181201
